FAERS Safety Report 4946025-9 (Version None)
Quarter: 2006Q1

REPORT INFORMATION
  Report Type: 
  Country: None (occurrence: None)
  Receive Date: 20060316
  Receipt Date: 20060301
  Transmission Date: 20060701
  Serious: Yes (Hospitalization)
  Sender: FDA-Public Use
  Company Number: US-MERCK-0603USA00443

PATIENT
  Age: 48 Year
  Sex: Female
  Weight: 82 kg

DRUGS (3)
  1. VIOXX [Suspect]
     Indication: INTERVERTEBRAL DISC PROTRUSION
     Route: 048
  2. VIOXX [Suspect]
     Route: 048
  3. ALEVE [Concomitant]
     Route: 065

REACTIONS (3)
  - ADVERSE EVENT [None]
  - EMOTIONAL DISORDER [None]
  - RENAL CELL CARCINOMA STAGE UNSPECIFIED [None]
